FAERS Safety Report 12337075 (Version 2)
Quarter: 2016Q2

REPORT INFORMATION
  Report Type: Spontaneous
  Country: CH (occurrence: CH)
  Receive Date: 20160505
  Receipt Date: 20160512
  Transmission Date: 20160815
  Serious: Yes (Hospitalization, Other)
  Sender: FDA-Public Use
  Company Number: PHHY2016CH057900

PATIENT
  Sex: Female

DRUGS (20)
  1. EXCIPIAL U LOTIO [Concomitant]
     Indication: PRODUCT USED FOR UNKNOWN INDICATION
     Dosage: 1 DF, BID
     Route: 065
  2. DAFALGAN [Concomitant]
     Active Substance: ACETAMINOPHEN
     Indication: PRODUCT USED FOR UNKNOWN INDICATION
     Dosage: 4 DF, PRN (UPTO 4 DF PER DAY AS NEEDED)
     Route: 065
  3. GILENYA [Suspect]
     Active Substance: FINGOLIMOD HYDROCHLORIDE
     Indication: PRODUCT USED FOR UNKNOWN INDICATION
     Dosage: 1 DF, QD
     Route: 065
     Dates: start: 20130215
  4. TEMESTA [Concomitant]
     Active Substance: LORAZEPAM
     Indication: PRODUCT USED FOR UNKNOWN INDICATION
     Dosage: 0.5 MG, PRN (AS NEEDED)
     Route: 065
  5. PANTOPRAZOL SPIRIG HC [Concomitant]
     Indication: PRODUCT USED FOR UNKNOWN INDICATION
     Dosage: 1 DF, QD
     Route: 065
  6. INFLAMAC [Concomitant]
     Active Substance: DICLOFENAC SODIUM
     Indication: PRODUCT USED FOR UNKNOWN INDICATION
     Dosage: 1 DF, BID (AS NEEDED)
     Route: 065
  7. METHADONE HCL [Concomitant]
     Active Substance: METHADONE HYDROCHLORIDE
     Indication: PRODUCT USED FOR UNKNOWN INDICATION
     Dosage: 10 MG/ML, BID
     Route: 048
  8. MOTILIUM ^BYK GULDEN^ [Concomitant]
     Indication: PRODUCT USED FOR UNKNOWN INDICATION
     Dosage: 4 DF, PRN (MAX 4X/DAY AS NEEDED)
     Route: 065
  9. TOREM [Concomitant]
     Active Substance: TORSEMIDE
     Indication: PRODUCT USED FOR UNKNOWN INDICATION
     Dosage: 1 DF, BID
     Route: 065
  10. CORTINASAL [Concomitant]
     Indication: PRODUCT USED FOR UNKNOWN INDICATION
     Dosage: 1 DF, BID
     Route: 065
  11. MOVICOL [Concomitant]
     Active Substance: POLYETHYLENE GLYCOL 3350\POTASSIUM CHLORIDE\SODIUM BICARBONATE\SODIUM CHLORIDE
     Indication: PRODUCT USED FOR UNKNOWN INDICATION
     Dosage: 1 DF, QD (AS NEEDED)
     Route: 065
  12. NOVALGIN [Concomitant]
     Active Substance: METAMIZOLE SODIUM
     Indication: PRODUCT USED FOR UNKNOWN INDICATION
     Dosage: 4 DF, PRN (UPTO 4 DF PER DAY AS NEEDED)
     Route: 065
  13. BULBOID [Concomitant]
     Indication: PRODUCT USED FOR UNKNOWN INDICATION
     Dosage: 2 DF, PRN (MAX 2X/DAY AS NEEDED)
     Route: 065
  14. LOSARTAN SANDOZ [Concomitant]
     Active Substance: LOSARTAN
     Indication: BLOOD PRESSURE INCREASED
     Dosage: 1 DF, QD
     Route: 065
  15. LAMOTRIGIN DESITIN [Concomitant]
     Indication: PRODUCT USED FOR UNKNOWN INDICATION
     Dosage: 2 DF, BID
     Route: 065
  16. LYRICA [Concomitant]
     Active Substance: PREGABALIN
     Indication: PRODUCT USED FOR UNKNOWN INDICATION
     Dosage: 1 DF, QD
     Route: 065
  17. METFIN [Concomitant]
     Active Substance: METFORMIN HYDROCHLORIDE
     Indication: PRODUCT USED FOR UNKNOWN INDICATION
     Route: 065
  18. ATORVASTATIN [Concomitant]
     Active Substance: ATORVASTATIN
     Indication: PRODUCT USED FOR UNKNOWN INDICATION
     Dosage: 1 DF, QD
     Route: 065
  19. CALCIMAGON D3 [Concomitant]
     Active Substance: CALCIUM\CHOLECALCIFEROL
     Indication: PRODUCT USED FOR UNKNOWN INDICATION
     Dosage: 1 DF, QD
     Route: 065
  20. MAGNESIOCARD [Concomitant]
     Active Substance: MAGNESIUM ASPARTATE HYDROCHLORIDE
     Indication: PRODUCT USED FOR UNKNOWN INDICATION
     Dosage: 1 DF, QD
     Route: 065

REACTIONS (28)
  - Memory impairment [Unknown]
  - Epilepsy [Unknown]
  - Cardiac failure [Unknown]
  - Substance dependence [Unknown]
  - Chronic hepatitis C [Unknown]
  - Dyslipidaemia [Unknown]
  - Relapsing-remitting multiple sclerosis [Unknown]
  - Nephrolithiasis [Unknown]
  - Renal atrophy [Unknown]
  - Visual impairment [Unknown]
  - Type 2 diabetes mellitus [Unknown]
  - Paraesthesia [Unknown]
  - Drug abuse [Unknown]
  - Calcinosis [Unknown]
  - Sleep apnoea syndrome [Unknown]
  - Central nervous system lesion [Unknown]
  - Hepatic enzyme increased [Unknown]
  - Impaired healing [Unknown]
  - Partial seizures with secondary generalisation [Unknown]
  - Optic neuritis [Unknown]
  - Spinal osteoarthritis [Unknown]
  - Chronic kidney disease [Unknown]
  - Oedema [Recovering/Resolving]
  - Dizziness [Unknown]
  - Peripheral vascular disorder [Unknown]
  - Interspinous osteoarthritis [Unknown]
  - Scar [Unknown]
  - Tobacco abuse [Unknown]

NARRATIVE: CASE EVENT DATE: 20151118
